FAERS Safety Report 7970024-6 (Version None)
Quarter: 2011Q4

REPORT INFORMATION
  Report Type: 
  Country: None (occurrence: None)
  Receive Date: 20111212
  Receipt Date: 20111206
  Transmission Date: 20120403
  Serious: Yes (Hospitalization, Other)
  Sender: FDA-Public Use
  Company Number: US-SANOFI-AVENTIS-2011SA065158

PATIENT
  Sex: Female

DRUGS (1)
  1. PLAVIX [Suspect]
     Route: 048
     Dates: start: 20010301

REACTIONS (5)
  - EMBOLIC STROKE [None]
  - COLITIS ULCERATIVE [None]
  - DIARRHOEA [None]
  - IRRITABLE BOWEL SYNDROME [None]
  - MEDICATION RESIDUE [None]
